FAERS Safety Report 7225071-9 (Version None)
Quarter: 2011Q1

REPORT INFORMATION
  Report Type: 
  Country: None (occurrence: None)
  Receive Date: 20110113
  Receipt Date: 20110103
  Transmission Date: 20110831
  Serious: Yes (Other)
  Sender: FDA-Public Use
  Company Number: US-NAPPMUNDI-DEU-2011-0006868

PATIENT
  Age: 33 Year
  Sex: Male

DRUGS (3)
  1. METHADONE [Suspect]
     Indication: PROCEDURAL PAIN
  2. MODAFINIL [Concomitant]
  3. HYDROMORPHONE HCL (SIMILAR TO 19-892) [Suspect]
     Indication: PROCEDURAL PAIN

REACTIONS (1)
  - HYPERAESTHESIA [None]
